FAERS Safety Report 5738007-4 (Version None)
Quarter: 2008Q2

REPORT INFORMATION
  Report Type: 
  Country: None (occurrence: None)
  Receive Date: 20080509
  Receipt Date: 20020412
  Transmission Date: 20081010
  Serious: Yes (Other)
  Sender: FDA-Public Use
  Company Number: 6000063

PATIENT
  Age: 76 Year
  Sex: Female

DRUGS (3)
  1. BISOPROLOL FUMARATE [Suspect]
     Indication: HYPERTENSION
     Dosage: 10 MG (1 IN 1 D) ORAL
     Route: 048
     Dates: start: 20000218, end: 20020307
  2. BISOPROLOL FUMARATE [Suspect]
     Indication: VENTRICULAR EXTRASYSTOLES
     Dosage: 10 MG (1 IN 1 D) ORAL
     Route: 048
     Dates: start: 20000218, end: 20020307
  3. CO-RENITEC             (HYDROCHLOROTHIAZIDE, ENALAPRIL MALEATE) [Suspect]
     Indication: HYPERTENSION
     Dosage: (1 IN 1 D) ORAL
     Route: 048
     Dates: start: 19970402, end: 20020405

REACTIONS (2)
  - ACTIVATED PARTIAL THROMBOPLASTIN TIME PROLONGED [None]
  - ANTINUCLEAR ANTIBODY POSITIVE [None]
